FAERS Safety Report 6897764-4 (Version None)
Quarter: 2010Q3

REPORT INFORMATION
  Report Type: 
  Country: None (occurrence: None)
  Receive Date: 20100802
  Receipt Date: 20070713
  Transmission Date: 20110219
  Serious: Yes (Other)
  Sender: FDA-Public Use
  Company Number: US-PFIZER INC-2007058011

PATIENT
  Sex: Male
  Weight: 68.181 kg

DRUGS (2)
  1. LYRICA [Suspect]
     Indication: FIBROMYALGIA
     Dates: start: 20070703
  2. TOPROL-XL [Concomitant]

REACTIONS (2)
  - ORAL DISCOMFORT [None]
  - SPEECH DISORDER [None]
